FAERS Safety Report 13728072 (Version 2)
Quarter: 2017Q3

REPORT INFORMATION
  Report Type: Spontaneous
  Country: US (occurrence: US)
  Receive Date: 20170707
  Receipt Date: 20170823
  Transmission Date: 20171127
  Serious: No
  Sender: FDA-Public Use
  Company Number: US-PFIZER INC-2017293466

PATIENT
  Age: 35 Year
  Sex: Male

DRUGS (6)
  1. ADVIL [Suspect]
     Active Substance: IBUPROFEN
     Dosage: 400 MG, UNK
     Dates: start: 2017
  2. ADVIL [Suspect]
     Active Substance: IBUPROFEN
     Dosage: 200 MG, UNK
     Dates: start: 2017
  3. ADVIL [Suspect]
     Active Substance: IBUPROFEN
     Dosage: 600 MG, UNK
     Dates: start: 2017
  4. ADVIL [Suspect]
     Active Substance: IBUPROFEN
     Indication: PROCTALGIA
     Dosage: 800 MG, 4X/DAY, ^FROM THURSDAY AFTERNOON FROM 6 PM ALL THE WAY TO FRIDAY 11 PM^
     Dates: start: 20170629
  5. PREPARATION H HYDROCORTISONE [Concomitant]
     Active Substance: HYDROCORTISONE
     Indication: HAEMORRHOIDS
     Dosage: UNK
     Dates: start: 20170702
  6. ADVIL [Suspect]
     Active Substance: IBUPROFEN
     Dosage: 800 MG, UNK
     Dates: start: 2017

REACTIONS (5)
  - Disorientation [Unknown]
  - Mobility decreased [Unknown]
  - Overdose [Unknown]
  - Drug effect incomplete [Unknown]
  - Insomnia [Not Recovered/Not Resolved]

NARRATIVE: CASE EVENT DATE: 2017
